FAERS Safety Report 8294159-6 (Version None)
Quarter: 2012Q2

REPORT INFORMATION
  Report Type: 
  Country: None (occurrence: None)
  Receive Date: 20120418
  Receipt Date: 20120412
  Transmission Date: 20120825
  Serious: Yes (Other)
  Sender: FDA-Public Use
  Company Number: PHHY2011MX80197

PATIENT
  Sex: Female

DRUGS (1)
  1. ZOLEDRONOC ACID [Suspect]
     Indication: OSTEOPOROSIS
     Dosage: 5MG/100ML EACH YEAR
     Route: 042
     Dates: start: 20110812, end: 20110901

REACTIONS (7)
  - CONVULSION [None]
  - PALLOR [None]
  - NAUSEA [None]
  - HYPOTENSION [None]
  - DIZZINESS [None]
  - SYNCOPE [None]
  - HAEMORRHAGE [None]
